FAERS Safety Report 9192865 (Version 1)
Quarter: 2013Q1

REPORT INFORMATION
  Report Type: Report from Study
  Country: US (occurrence: US)
  Receive Date: 20130327
  Receipt Date: 20130327
  Transmission Date: 20140127
  Serious: Yes (Hospitalization)
  Sender: FDA-Public Use
  Company Number: US-VERTEX PHARMACEUTICALS INC.-2013-004072

PATIENT
  Age: 60 Year
  Sex: Male
  Weight: 79 kg

DRUGS (5)
  1. VX-950 (TELAPREVIR) [Suspect]
     Indication: HEPATITIS C
     Dosage: 750 MG, TID
     Route: 048
     Dates: end: 20120401
  2. PEGASYS [Suspect]
     Indication: HEPATITIS C
     Dosage: 180 ?G
     Dates: end: 20120401
  3. RIBAPAK [Suspect]
     Indication: HEPATITIS C
     Dosage: 1200/DAY
     Dates: end: 20120401
  4. MUCINEX DM [Concomitant]
     Dosage: 30-600 ER
  5. PROBIOTIC [Concomitant]

REACTIONS (2)
  - Gastrointestinal disorder [Unknown]
  - Diverticulitis [Unknown]
